FAERS Safety Report 9070675 (Version 2)
Quarter: 2013Q1

REPORT INFORMATION
  Report Type: Spontaneous
  Country: JP (occurrence: JP)
  Receive Date: 20130206
  Receipt Date: 20130301
  Transmission Date: 20140127
  Serious: Yes (Other)
  Sender: FDA-Public Use
  Company Number: JP-B.I. PHARMACEUTICALS,INC./RIDGEFIELD-2013-BI-03337YA

PATIENT
  Age: 62 Year
  Sex: Male
  Weight: 60.1 kg

DRUGS (6)
  1. HARNAL [Suspect]
     Indication: BENIGN PROSTATIC HYPERPLASIA
     Dosage: 0.2 MG
     Route: 048
     Dates: start: 20110609
  2. PROGRAF [Suspect]
     Indication: IMMUNOSUPPRESSANT DRUG THERAPY
     Dosage: 2 MG
     Route: 048
     Dates: start: 20110519, end: 20110814
  3. CELLCEPT [Suspect]
     Indication: IMMUNOSUPPRESSANT DRUG THERAPY
     Dosage: 500 MG
     Route: 048
     Dates: start: 20110519, end: 20110920
  4. CELLCEPT [Suspect]
     Dosage: 750 MG
     Route: 048
     Dates: start: 20110921
  5. MEDROL [Suspect]
     Indication: IMMUNOSUPPRESSANT DRUG THERAPY
     Dosage: 4 MG
     Route: 048
     Dates: start: 20110519
  6. GRACEPTOR [Concomitant]
     Dates: start: 20110815

REACTIONS (2)
  - BK virus infection [Not Recovered/Not Resolved]
  - Urinary tract infection [Not Recovered/Not Resolved]
